FAERS Safety Report 4983171-8 (Version None)
Quarter: 2006Q2

REPORT INFORMATION
  Report Type: 
  Country: None (occurrence: None)
  Receive Date: 20060419
  Receipt Date: 20060418
  Transmission Date: 20061013
  Serious: Yes (Life-Threatening, Hospitalization)
  Sender: FDA-Public Use
  Company Number: 2006P1000054

PATIENT
  Age: 42 Year
  Sex: Male
  Weight: 90 kg

DRUGS (12)
  1. RETEPLASE (RETEPLASE) [Suspect]
     Indication: ACUTE MYOCARDIAL INFARCTION
     Dosage: IV
     Route: 042
     Dates: start: 20051127
  2. REOPRO [Suspect]
     Indication: ACUTE MYOCARDIAL INFARCTION
     Dosage: IV
     Route: 042
     Dates: start: 20051127
  3. ACETYLSALICYLATE LYSINE [Concomitant]
  4. CLOPIDOGREL BISULFATE [Concomitant]
  5. BISOPROLOL [Concomitant]
  6. PERINDOPRIL [Concomitant]
  7. IXPRIM [Concomitant]
  8. OMEPRAZOLE [Concomitant]
  9. ATORVASTATIN CALCIUM [Concomitant]
  10. HEPARIN [Concomitant]
  11. TIROFIBAN HYDROCHLORIDE [Concomitant]
  12. ASPIRIN [Concomitant]

REACTIONS (5)
  - BODY TEMPERATURE INCREASED [None]
  - CORONARY ARTERY OCCLUSION [None]
  - CORONARY ARTERY STENOSIS [None]
  - MYOCARDIAL ISCHAEMIA [None]
  - VENTRICULAR HYPERKINESIA [None]
